FAERS Safety Report 12159787 (Version 2)
Quarter: 2016Q1

REPORT INFORMATION
  Report Type: Spontaneous
  Country: DK (occurrence: JP)
  Receive Date: 20160308
  Receipt Date: 20160330
  Transmission Date: 20160526
  Serious: Yes (Life-Threatening, Hospitalization)
  Sender: FDA-Public Use
  Company Number: JP-FRI-1000082992

PATIENT
  Age: 47 Year
  Sex: Female
  Weight: 37 kg

DRUGS (10)
  1. GASMOTIN [Suspect]
     Active Substance: MOSAPRIDE CITRATE
     Indication: PRODUCT USED FOR UNKNOWN INDICATION
     Dosage: 5 MG
     Route: 048
  2. FLUNITRAZEPAM [Suspect]
     Active Substance: FLUNITRAZEPAM
     Dosage: OVERDOSE: 36 MG
     Route: 048
     Dates: end: 20160117
  3. ETHYL LOFLAZEPATE [Suspect]
     Active Substance: ETHYL LOFLAZEPATE
     Dosage: OVERDOSE: 34 MG
     Route: 048
     Dates: end: 20160117
  4. GASMOTIN [Suspect]
     Active Substance: MOSAPRIDE CITRATE
     Dosage: OVERDOSE: 150 MG
     Route: 048
     Dates: end: 20160117
  5. LEXAPRO [Suspect]
     Active Substance: ESCITALOPRAM OXALATE
     Dosage: OVERDOSE: 300 MG
     Route: 048
     Dates: end: 20160117
  6. ETHYL LOFLAZEPATE [Suspect]
     Active Substance: ETHYL LOFLAZEPATE
     Indication: PRODUCT USED FOR UNKNOWN INDICATION
     Dosage: 2 MG
     Route: 048
  7. FLUNITRAZEPAM [Suspect]
     Active Substance: FLUNITRAZEPAM
     Indication: INSOMNIA
     Dosage: 2 MG
     Route: 048
  8. PODONIN-S [Suspect]
     Active Substance: GLUTAMINE\SODIUM GUALENATE
     Indication: PRODUCT USED FOR UNKNOWN INDICATION
     Dosage: 0.5 MG
     Route: 048
  9. PODONIN-S [Suspect]
     Active Substance: GLUTAMINE\SODIUM GUALENATE
     Dosage: OVERDOSE: 15 MG
     Route: 048
     Dates: end: 20160117
  10. LEXAPRO [Suspect]
     Active Substance: ESCITALOPRAM OXALATE
     Indication: DEPRESSION
     Route: 048

REACTIONS (3)
  - Depressed level of consciousness [Recovered/Resolved]
  - Overdose [Recovered/Resolved]
  - Suicide attempt [Recovering/Resolving]

NARRATIVE: CASE EVENT DATE: 20160117
